FAERS Safety Report 8058097-6 (Version None)
Quarter: 2012Q1

REPORT INFORMATION
  Report Type: 
  Country: None (occurrence: None)
  Receive Date: 20120113
  Receipt Date: 20120104
  Transmission Date: 20120608
  Serious: Yes (Other)
  Sender: FDA-Public Use
  Company Number: 2012AP000018

PATIENT
  Age: 47 Year
  Sex: Male

DRUGS (5)
  1. METFORMIN HCL [Concomitant]
  2. LOSARTAN (LOSARTAN) 300 MG [Suspect]
     Indication: HYPERTENSION
     Dosage: 300 MG
  3. NOVOLOG [Concomitant]
  4. SIMVASTATIN [Concomitant]
  5. INSULIN SWRWMIE (INSULIN DETEMIR) [Concomitant]

REACTIONS (4)
  - PRODUCT SUBSTITUTION ISSUE [None]
  - RASH PAPULAR [None]
  - DERMATITIS ALLERGIC [None]
  - RASH ERYTHEMATOUS [None]
